FAERS Safety Report 6810750-5 (Version None)
Quarter: 2010Q2

REPORT INFORMATION
  Report Type: 
  Country: None (occurrence: None)
  Receive Date: 20100630
  Receipt Date: 20070607
  Transmission Date: 20101027
  Serious: No
  Sender: FDA-Public Use
  Company Number: US-PFIZER INC-2007024657

PATIENT
  Sex: Female
  Weight: 68.04 kg

DRUGS (6)
  1. NICOTINE [Suspect]
     Indication: SMOKING CESSATION THERAPY
     Route: 048
     Dates: start: 20070216
  2. OXYCODONE HCL [Concomitant]
  3. VALIUM [Concomitant]
  4. AMBIEN [Concomitant]
  5. WELLBUTRIN [Concomitant]
  6. PRILOSEC [Concomitant]

REACTIONS (1)
  - DRUG INEFFECTIVE [None]
